FAERS Safety Report 10652068 (Version 1)
Quarter: 2014Q4

REPORT INFORMATION
  Report Type: Spontaneous
  Country: US (occurrence: None)
  Receive Date: 20141212
  Receipt Date: 20141212
  Transmission Date: 20150529
  Serious: No
  Sender: FDA-Public Use
  Company Number: None

PATIENT
  Age: 35 Year
  Sex: Female
  Weight: 51.26 kg

DRUGS (1)
  1. KENALOG [Suspect]
     Active Substance: TRIAMCINOLONE ACETONIDE
     Indication: MORTON^S NEURALGIA
     Dosage: 6 INJECTIONS AS NEEDED GIVEN INTO/UNDER THE KIN
     Dates: start: 20140318, end: 20140521

REACTIONS (1)
  - Alopecia [None]

NARRATIVE: CASE EVENT DATE: 20140318
